FAERS Safety Report 6062614-5 (Version None)
Quarter: 2009Q1

REPORT INFORMATION
  Report Type: 
  Country: None (occurrence: None)
  Receive Date: 20090203
  Receipt Date: 20090121
  Transmission Date: 20090719
  Serious: Yes (Death)
  Sender: FDA-Public Use
  Company Number: AU-PFIZER INC-2009162870

PATIENT

DRUGS (3)
  1. XANAX [Suspect]
  2. CLOZAPINE [Concomitant]
  3. VALPROATE SODIUM [Concomitant]

REACTIONS (1)
  - DEATH [None]
